FAERS Safety Report 21509346 (Version 2)
Quarter: 2022Q4

REPORT INFORMATION
  Report Type: Report from Study
  Country: IT (occurrence: IT)
  Receive Date: 20221026
  Receipt Date: 20221031
  Transmission Date: 20230113
  Serious: Yes (Death, Other)
  Sender: FDA-Public Use
  Company Number: IT-GILEAD-2022-0589345

PATIENT
  Sex: Female
  Weight: 60 kg

DRUGS (2)
  1. SACITUZUMAB GOVITECAN [Suspect]
     Active Substance: SACITUZUMAB GOVITECAN
     Indication: Triple negative breast cancer
     Dosage: UNK, CYCLE UNK, D1
     Route: 065
  2. SACITUZUMAB GOVITECAN [Suspect]
     Active Substance: SACITUZUMAB GOVITECAN
     Dosage: 540 MG (DOSE ROUNDED DOWN)
     Route: 065
     Dates: end: 20220820

REACTIONS (3)
  - Disease progression [Fatal]
  - Product dose omission issue [Unknown]
  - Intentional product use issue [Unknown]
